FAERS Safety Report 6312936-5 (Version None)
Quarter: 2009Q3

REPORT INFORMATION
  Report Type: 
  Country: None (occurrence: None)
  Receive Date: 20090814
  Receipt Date: 20090814
  Transmission Date: 20100115
  Serious: Yes (Death)
  Sender: FDA-Public Use
  Company Number: None

PATIENT
  Sex: Male

DRUGS (5)
  1. REVLIMID [Suspect]
     Indication: MULTIPLE MYELOMA
     Dosage: 15MG 21D/28D ORALLY
     Route: 048
  2. DEXAMETHASONE [Concomitant]
  3. PROCRIT [Concomitant]
  4. FENTANYL TRANSDERMAL SYSTEM [Concomitant]
  5. PERCOCET [Concomitant]

REACTIONS (1)
  - MALIGNANT NEOPLASM PROGRESSION [None]
